FAERS Safety Report 10339990 (Version 1)
Quarter: 2014Q3

REPORT INFORMATION
  Report Type: Spontaneous
  Country: IT (occurrence: IT)
  Receive Date: 20140724
  Receipt Date: 20140724
  Transmission Date: 20150326
  Serious: Yes (Hospitalization)
  Sender: FDA-Public Use
  Company Number: IT-TEVA-495134ISR

PATIENT
  Age: 56 Year
  Sex: Male

DRUGS (4)
  1. QUETIAPINA TEVA 100 MG [Suspect]
     Active Substance: QUETIAPINE
     Indication: DEPRESSION
     Dosage: 40 DOSAGE FORMS DAILY;
     Route: 048
     Dates: start: 20140620, end: 20140620
  2. EN [Concomitant]
     Active Substance: DELORAZEPAM
     Dosage: 10 GTT DAILY;
     Route: 048
  3. EFEXOR 150 MG [Suspect]
     Active Substance: VENLAFAXINE HYDROCHLORIDE
     Indication: DEPRESSION
     Dosage: 6 DOSAGE FORMS DAILY;
     Route: 048
     Dates: start: 20140620, end: 20140620
  4. CARDICOR 1.25 MG [Suspect]
     Active Substance: BISOPROLOL FUMARATE
     Indication: DEPRESSION
     Dosage: 20 DOSAGE FORMS DAILY;
     Route: 048
     Dates: start: 20140620, end: 20140620

REACTIONS (2)
  - Drug abuse [Recovering/Resolving]
  - Sopor [Recovering/Resolving]

NARRATIVE: CASE EVENT DATE: 20140620
